FAERS Safety Report 7572490-7 (Version None)
Quarter: 2011Q2

REPORT INFORMATION
  Report Type: 
  Country: None (occurrence: None)
  Receive Date: 20110627
  Receipt Date: 20110623
  Transmission Date: 20111010
  Serious: Yes (Hospitalization)
  Sender: FDA-Public Use
  Company Number: US-BRISTOL-MYERS SQUIBB COMPANY-15852379

PATIENT
  Age: 61 Year
  Sex: Male
  Weight: 80 kg

DRUGS (20)
  1. LORAZEPAM [Concomitant]
     Dosage: 0.5-1 MG Q12HRS
     Route: 042
  2. SODIUM CHLORIDE [Concomitant]
     Route: 042
  3. FERROUS SULFATE TAB [Concomitant]
     Dosage: EC 324MG TAB
     Route: 048
  4. HEPARIN LOCK-FLUSH [Concomitant]
     Route: 042
  5. KEPPRA [Concomitant]
     Dosage: 1 DF: 2 TAB 1000MG BID
     Route: 048
  6. PREDNISONE [Concomitant]
     Dosage: TAB
     Route: 048
  7. VANCOMYCIN [Concomitant]
     Route: 048
  8. FENTANYL [Concomitant]
     Route: 042
  9. ONDANSETRON [Concomitant]
     Dosage: 1 DF: 4-8 MG TAB Q8HRS PRN INJ IV 4MG/2ML
     Route: 048
  10. HEPARIN SODIUM [Concomitant]
     Route: 058
  11. RANITIDINE [Concomitant]
     Route: 048
  12. TRIAMCINOLONE [Concomitant]
     Dosage: 1 DF: 1 APPLICATION CREAM 80G
     Route: 061
  13. IPILIMUMAB [Suspect]
     Indication: MALIGNANT MELANOMA
     Route: 042
     Dates: start: 20110202, end: 20110405
  14. PROCHLORPERAZINE TAB [Concomitant]
     Dosage: INJ Q6HRS
     Route: 042
  15. OMEPRAZOLE [Concomitant]
     Dosage: 1 DF: 1 CAP
     Route: 048
  16. METRONIDAZOLE [Concomitant]
     Dosage: ROA:IVPB
  17. TENOFOVIR DISOPROXIL FUMARATE [Concomitant]
     Route: 048
  18. FLAGYL [Concomitant]
     Dosage: ALSO ORAL
     Route: 042
  19. IMODIUM [Concomitant]
  20. MIDAZOLAM HCL [Concomitant]
     Route: 042

REACTIONS (2)
  - CLOSTRIDIAL INFECTION [None]
  - ENTEROCOLITIS [None]
